FAERS Safety Report 8243737 (Version 8)
Quarter: 2012Q4

REPORT INFORMATION
  Report Type: 
  Country: JP (occurrence: JP)
  Receive Date: 20111114
  Receipt Date: 20121008
  Transmission Date: 20130627
  Serious: Yes (Other)
  Sender: FDA-Public Use
  Company Number: JP-GLAXOSMITHKLINE-B0762093A

PATIENT
  Age: 50 Year
  Sex: Female
  Weight: 62.5 kg

DRUGS (3)
  1. HYCAMTIN [Suspect]
     Indication: OVARIAN EPITHELIAL CANCER
     Route: 042
     Dates: start: 20111024, end: 20120120
  2. GRANISETRON [Concomitant]
     Indication: NAUSEA
     Dosage: 3MG per day
     Route: 042
     Dates: start: 20111024, end: 20120120
  3. DEXAMETHASONE SODIUM PHOSPHATE [Concomitant]
     Indication: NAUSEA
     Dosage: 6.6MG per day
     Route: 042
     Dates: start: 20111024, end: 20120120

REACTIONS (10)
  - Aspartate aminotransferase increased [Recovered/Resolved]
  - Alanine aminotransferase increased [Recovered/Resolved]
  - Anaemia [Unknown]
  - White blood cell count decreased [Recovered/Resolved]
  - Neutrophil count decreased [Recovered/Resolved]
  - Gamma-glutamyltransferase increased [Recovered/Resolved]
  - Blood alkaline phosphatase increased [Recovered/Resolved]
  - Platelet count decreased [Unknown]
  - Blood creatinine increased [Not Recovered/Not Resolved]
  - Pain of skin [Recovered/Resolved]
